FAERS Safety Report 7091143-5 (Version None)
Quarter: 2010Q4

REPORT INFORMATION
  Report Type: 
  Country: None (occurrence: None)
  Receive Date: 20101105
  Receipt Date: 20101105
  Transmission Date: 20110411
  Serious: Yes (Other)
  Sender: FDA-Public Use
  Company Number: None

PATIENT
  Sex: Female
  Weight: 19.5047 kg

DRUGS (2)
  1. MIDAZOLAM HCL [Suspect]
     Indication: SEDATION
     Dosage: 7MG ONCE IV BOLUS
     Route: 040
     Dates: start: 20100601, end: 20101103
  2. MIDAZOLAM HCL [Suspect]

REACTIONS (1)
  - PRODUCT FORMULATION ISSUE [None]
